FAERS Safety Report 24121433 (Version 1)
Quarter: 2024Q3

REPORT INFORMATION
  Report Type: Report from Study
  Country: CN (occurrence: CN)
  Receive Date: 20240722
  Receipt Date: 20240722
  Transmission Date: 20241016
  Serious: Yes (Other)
  Sender: PFIZER
  Company Number: CN-TAKEDA-2024TUS023302

PATIENT
  Age: 53 Year
  Sex: Male
  Weight: 82 kg

DRUGS (23)
  1. BRENTUXIMAB VEDOTIN [Suspect]
     Active Substance: BRENTUXIMAB VEDOTIN
     Indication: Hodgkin^s disease
     Dosage: 150 MILLIGRAM, Q2WEEKS
     Route: 041
     Dates: start: 20240224
  2. BRENTUXIMAB VEDOTIN [Suspect]
     Active Substance: BRENTUXIMAB VEDOTIN
     Dosage: 150 MILLIGRAM, Q4WEEKS
     Route: 041
  3. BRENTUXIMAB VEDOTIN [Suspect]
     Active Substance: BRENTUXIMAB VEDOTIN
     Dosage: 100 MILLIGRAM, Q2WEEKS
     Route: 041
     Dates: start: 20240326
  4. BRENTUXIMAB VEDOTIN [Suspect]
     Active Substance: BRENTUXIMAB VEDOTIN
     Dosage: 50 MILLIGRAM, Q2WEEKS
     Route: 041
     Dates: start: 20240408
  5. BRENTUXIMAB VEDOTIN [Suspect]
     Active Substance: BRENTUXIMAB VEDOTIN
     Dosage: 100 MILLIGRAM, Q2WEEKS
     Route: 041
     Dates: start: 20240424
  6. BRENTUXIMAB VEDOTIN [Suspect]
     Active Substance: BRENTUXIMAB VEDOTIN
     Dosage: 50 MILLIGRAM, Q2WEEKS
     Route: 041
     Dates: start: 20240508
  7. BRENTUXIMAB VEDOTIN [Suspect]
     Active Substance: BRENTUXIMAB VEDOTIN
     Dosage: 100 MILLIGRAM, Q2WEEKS
     Route: 041
     Dates: start: 20240523
  8. BRENTUXIMAB VEDOTIN [Suspect]
     Active Substance: BRENTUXIMAB VEDOTIN
     Dosage: 50 MILLIGRAM, Q2WEEKS
     Route: 041
     Dates: start: 20240611
  9. DEXAMETHASONE SODIUM PHOSPHATE [Concomitant]
     Active Substance: DEXAMETHASONE PHOSPHATE\DEXAMETHASONE SODIUM PHOSPHATE
     Indication: Allergy prophylaxis
     Dosage: 5 MILLIGRAM, BID
     Route: 042
     Dates: start: 20240224, end: 20240224
  10. DIPHENHYDRAMINE HYDROCHLORIDE [Concomitant]
     Active Substance: DIPHENHYDRAMINE HYDROCHLORIDE
     Indication: Allergy prophylaxis
     Dosage: 20 MILLIGRAM, QD
     Route: 030
     Dates: start: 20240224, end: 20240224
  11. SODIUM BICARBONATE [Concomitant]
     Active Substance: SODIUM BICARBONATE
     Indication: Prophylaxis
     Dosage: 40 MILLILITER, QD
     Route: 042
     Dates: start: 20240224, end: 20240225
  12. DOLASETRON MESYLATE [Concomitant]
     Active Substance: DOLASETRON MESYLATE
     Indication: Prophylaxis of nausea and vomiting
     Dosage: 100 MILLIGRAM, QD
     Route: 042
     Dates: start: 20240224, end: 20240224
  13. OSELTAMIVIR PHOSPHATE [Concomitant]
     Active Substance: OSELTAMIVIR PHOSPHATE
     Indication: Influenza
     Dosage: 75 MILLIGRAM, BID
     Route: 048
     Dates: start: 20240224, end: 20240225
  14. AMBROXOL HYDROCHLORIDE [Concomitant]
     Active Substance: AMBROXOL HYDROCHLORIDE
     Indication: Influenza
     Dosage: 60 MILLIGRAM, TID
     Route: 048
     Dates: start: 20240224, end: 20240225
  15. AMINOPHYLLINE\CHLORPHENIRAMINE MALEATE\METHOXYPHENAMINE HYDROCHLORIDE\ [Concomitant]
     Active Substance: AMINOPHYLLINE\CHLORPHENIRAMINE MALEATE\METHOXYPHENAMINE HYDROCHLORIDE\NOSCAPINE
     Indication: Influenza
     Dosage: UNK UNK, TID
     Route: 048
     Dates: start: 20240224, end: 20240225
  16. FAMOTIDINE [Concomitant]
     Active Substance: FAMOTIDINE
     Indication: Prophylaxis
     Dosage: 20 MILLIGRAM, BID
     Route: 042
     Dates: start: 20240224, end: 20240225
  17. BUDESONIDE [Concomitant]
     Active Substance: BUDESONIDE
     Indication: Influenza
     Dosage: 1 MILLIGRAM, BID
     Route: 055
     Dates: start: 20240224, end: 20240225
  18. INDAPAMIDE [Concomitant]
     Active Substance: INDAPAMIDE
     Indication: Hypertension
     Dosage: UNK UNK, QD
     Route: 048
     Dates: start: 2014
  19. ACETYLCYSTEINE [Concomitant]
     Active Substance: ACETYLCYSTEINE
     Indication: Influenza
     Dosage: 3 MILLIGRAM, BID
     Route: 055
     Dates: start: 20240224, end: 20240225
  20. LACTULOSE [Concomitant]
     Active Substance: LACTULOSE
     Indication: Laxative supportive care
     Dosage: 15 MILLIGRAM
     Route: 048
     Dates: start: 20240224, end: 20240225
  21. CALCIUM CARBONATE [Concomitant]
     Active Substance: CALCIUM CARBONATE
     Indication: Prophylaxis
     Dosage: UNK UNK, QD
     Route: 048
     Dates: start: 20240224
  22. APREPITANT [Concomitant]
     Active Substance: APREPITANT
     Indication: Gastrointestinal disorder prophylaxis
     Dosage: UNK UNK, QD
     Route: 048
     Dates: start: 20240224, end: 202402
  23. MOXIFLOXACIN HYDROCHLORIDE [Concomitant]
     Active Substance: MOXIFLOXACIN HYDROCHLORIDE\MOXIFLOXACIN HYDROCHLORIDE MONOHYDRATE
     Indication: Influenza
     Dosage: 0.4 GRAM
     Route: 048
     Dates: start: 20240225, end: 202402

REACTIONS (5)
  - Myelosuppression [Recovered/Resolved]
  - Hepatic function abnormal [Recovered/Resolved]
  - Beta 2 microglobulin increased [Unknown]
  - Disease recurrence [Unknown]
  - Off label use [Unknown]

NARRATIVE: CASE EVENT DATE: 20240224
